FAERS Safety Report 16909354 (Version 1)
Quarter: 2019Q4

REPORT INFORMATION
  Report Type: Spontaneous
  Country: US (occurrence: US)
  Receive Date: 20191011
  Receipt Date: 20191011
  Transmission Date: 20200122
  Serious: No
  Sender: FDA-Public Use
  Company Number: None

PATIENT
  Age: 69 Year
  Sex: Male

DRUGS (10)
  1. BENZONATATE. [Concomitant]
     Active Substance: BENZONATATE
  2. VOTRIENT [Suspect]
     Active Substance: PAZOPANIB HYDROCHLORIDE
     Route: 048
  3. LOKELMA [Concomitant]
     Active Substance: SODIUM ZIRCONIUM CYCLOSILICATE
  4. METOPROLOL. [Concomitant]
     Active Substance: METOPROLOL
  5. SILODOSIN. [Concomitant]
     Active Substance: SILODOSIN
  6. DIAZEPAM. [Concomitant]
     Active Substance: DIAZEPAM
  7. DOXYCYCLINE. [Concomitant]
     Active Substance: DOXYCYCLINE
  8. SODIUM BICARBONATE. [Concomitant]
     Active Substance: SODIUM BICARBONATE
  9. AUGMENTIN [Concomitant]
     Active Substance: AMOXICILLIN\CLAVULANATE POTASSIUM
  10. CALCITRIOL. [Concomitant]
     Active Substance: CALCITRIOL

REACTIONS (3)
  - Cerebral haemorrhage [None]
  - Malignant neoplasm progression [None]
  - Intracranial mass [None]

NARRATIVE: CASE EVENT DATE: 20191010
